FAERS Safety Report 9416516 (Version 1)
Quarter: 2013Q3

REPORT INFORMATION
  Report Type: Report from Study
  Country: GB (occurrence: GB)
  Receive Date: 20130724
  Receipt Date: 20130724
  Transmission Date: 20140515
  Serious: Yes (Hospitalization)
  Sender: FDA-Public Use
  Company Number: GB-ROCHE-565941

PATIENT
  Age: 64 Year
  Sex: Female
  Weight: 54 kg

DRUGS (6)
  1. METHOTREXATE [Suspect]
     Indication: RHEUMATOID ARTHRITIS
     Route: 065
     Dates: start: 20060625, end: 20080520
  2. FOLIC ACID [Concomitant]
     Route: 065
     Dates: start: 20050625, end: 20080520
  3. CO-DYDRAMOL [Concomitant]
     Dosage: TOTAL DAILY DOSAGE: 10 MG AND 500 MG
     Route: 065
  4. CALCICHEW D3 FORTE [Concomitant]
     Route: 065
  5. FLUOXETINE [Concomitant]
     Route: 065
  6. RITUXIMAB [Suspect]
     Indication: RHEUMATOID ARTHRITIS
     Route: 042
     Dates: start: 20060907

REACTIONS (2)
  - Neutropenic sepsis [Recovered/Resolved]
  - Neutropenic sepsis [Recovered/Resolved with Sequelae]
